FAERS Safety Report 22651006 (Version 1)
Quarter: 2023Q2

REPORT INFORMATION
  Report Type: Spontaneous
  Country: US (occurrence: None)
  Receive Date: 20230628
  Receipt Date: 20230628
  Transmission Date: 20230722
  Serious: Yes (Other)
  Sender: FDA-Public Use
  Company Number: 2023A143244

PATIENT
  Age: 860 Month
  Sex: Male

DRUGS (1)
  1. SYMBICORT [Suspect]
     Active Substance: BUDESONIDE\FORMOTEROL FUMARATE DIHYDRATE
     Indication: Chronic obstructive pulmonary disease
     Route: 055
     Dates: start: 201608

REACTIONS (8)
  - Non-small cell lung cancer [Unknown]
  - Cataract [Unknown]
  - Visual impairment [Unknown]
  - Chronic obstructive pulmonary disease [Unknown]
  - Dyspnoea [Unknown]
  - Hypoacusis [Unknown]
  - Insurance issue [Unknown]
  - Bacterial infection [Unknown]

NARRATIVE: CASE EVENT DATE: 20220801
